FAERS Safety Report 12425527 (Version 5)
Quarter: 2022Q2

REPORT INFORMATION
  Report Type: Report from Study
  Country: IN (occurrence: IN)
  Receive Date: 20160601
  Receipt Date: 20220412
  Transmission Date: 20220721
  Serious: Yes (Death, Hospitalization, Other)
  Sender: FDA-Public Use
  Company Number: PHHY2013IN003058

PATIENT
  Age: 65 Year
  Sex: Male

DRUGS (2)
  1. GLIVEC [Suspect]
     Active Substance: IMATINIB MESYLATE
     Indication: Chronic myeloid leukaemia
     Dosage: 600 MG
     Route: 065
  2. GLIVEC [Suspect]
     Active Substance: IMATINIB MESYLATE
     Dosage: 300 MG (3 X 100MG TABLETS)
     Route: 065

REACTIONS (6)
  - Death [Fatal]
  - Renal disorder [Unknown]
  - Full blood count decreased [Unknown]
  - Chronic kidney disease [Unknown]
  - Thrombocytopenia [Unknown]
  - Haemoglobin decreased [Unknown]

NARRATIVE: CASE EVENT DATE: 20210421
